FAERS Safety Report 11391848 (Version 2)
Quarter: 2019Q2

REPORT INFORMATION
  Report Type: Spontaneous
  Country: CO (occurrence: CO)
  Receive Date: 20150818
  Receipt Date: 20190620
  Transmission Date: 20190711
  Serious: Yes (Death, Other)
  Sender: FDA-Public Use
  Company Number: CO-AMGEN-COLSP2015083302

PATIENT
  Age: 58 Year
  Sex: Male

DRUGS (2)
  1. ENBREL [Suspect]
     Active Substance: ETANERCEPT
     Dosage: 50 MILLIGRAM
     Route: 058
  2. ENBREL [Suspect]
     Active Substance: ETANERCEPT
     Indication: PSORIATIC ARTHROPATHY
     Dosage: 50 MILLIGRAM, QWK
     Route: 058
     Dates: start: 2011

REACTIONS (2)
  - Death [Fatal]
  - Bladder cancer [Recovering/Resolving]

NARRATIVE: CASE EVENT DATE: 201901
